FAERS Safety Report 5312272-X (Version None)
Quarter: 2007Q2

REPORT INFORMATION
  Report Type: 
  Country: None (occurrence: None)
  Receive Date: 20070430
  Receipt Date: 20061006
  Transmission Date: 20071010
  Serious: No
  Sender: FDA-Public Use
  Company Number: 2006UW19420

PATIENT
  Age: 58 Year
  Sex: Female
  Weight: 70.3 kg

DRUGS (6)
  1. NEXIUM [Suspect]
     Indication: GASTROOESOPHAGEAL REFLUX DISEASE
     Route: 048
  2. PREDNISONE TAB [Concomitant]
     Route: 048
     Dates: start: 20050101
  3. IBUPROFEN [Concomitant]
     Route: 048
  4. ACYCLOVIR [Concomitant]
     Route: 048
  5. LOVASTATIN [Concomitant]
     Route: 048
  6. AMPICILLIN [Concomitant]
     Route: 048

REACTIONS (2)
  - DRUG INEFFECTIVE [None]
  - STOMACH DISCOMFORT [None]
